FAERS Safety Report 4893830-3 (Version None)
Quarter: 2005Q4

REPORT INFORMATION
  Report Type: 
  Country: None (occurrence: None)
  Receive Date: 20051223
  Receipt Date: 20051028
  Transmission Date: 20060501
  Serious: No
  Sender: FDA-Public Use
  Company Number: 2005PV003703

PATIENT
  Age: 39 Year
  Sex: Female
  Weight: 76.2043 kg

DRUGS (4)
  1. SYMLIN [Suspect]
     Indication: DIABETES MELLITUS INSULIN-DEPENDENT
     Dosage: 15 MCG;TID;SC, 21 MCG;TID;SC
     Route: 058
     Dates: start: 20051027, end: 20051030
  2. SYMLIN [Suspect]
     Indication: DIABETES MELLITUS INSULIN-DEPENDENT
     Dosage: 15 MCG;TID;SC, 21 MCG;TID;SC
     Route: 058
     Dates: start: 20051031
  3. HUMALOG [Concomitant]
  4. SYNTHROID [Concomitant]

REACTIONS (6)
  - BLOOD GLUCOSE DECREASED [None]
  - BLOOD GLUCOSE INCREASED [None]
  - FEELING HOT [None]
  - HYPERHIDROSIS [None]
  - INJECTION SITE PAIN [None]
  - NAUSEA [None]
